FAERS Safety Report 15632399 (Version 2)
Quarter: 2018Q4

REPORT INFORMATION
  Report Type: Spontaneous
  Country: ES (occurrence: ES)
  Receive Date: 20181119
  Receipt Date: 20181121
  Transmission Date: 20190205
  Serious: Yes (Hospitalization)
  Sender: FDA-Public Use
  Company Number: ES-JNJFOC-20181124619

PATIENT
  Age: 91 Year
  Sex: Female

DRUGS (6)
  1. FENTANYL. [Suspect]
     Active Substance: FENTANYL
     Indication: OSTEOARTHRITIS
     Route: 062
     Dates: start: 20180704, end: 20180710
  2. AERIUS (DESLORATADINE) [Concomitant]
     Active Substance: DESLORATADINE
     Indication: DERMATITIS ATOPIC
     Route: 048
     Dates: start: 20170103
  3. OMEPRAZOLE. [Concomitant]
     Active Substance: OMEPRAZOLE
     Indication: PRODUCT USED FOR UNKNOWN INDICATION
     Route: 048
     Dates: start: 20171121
  4. SINTROM [Concomitant]
     Active Substance: ACENOCOUMAROL
     Indication: ATRIAL FIBRILLATION
     Route: 048
     Dates: start: 20150309
  5. COLECALCIFEROL [Concomitant]
     Active Substance: CHOLECALCIFEROL
     Indication: HYPOVITAMINOSIS
     Route: 048
     Dates: start: 20180704
  6. BISOPROLOL [Concomitant]
     Active Substance: BISOPROLOL
     Indication: ATRIAL FIBRILLATION
     Route: 048
     Dates: start: 20150324

REACTIONS (2)
  - Cachexia [Recovered/Resolved]
  - Confusional state [Recovered/Resolved]

NARRATIVE: CASE EVENT DATE: 20180710
